FAERS Safety Report 6739719-6 (Version None)
Quarter: 2010Q2

REPORT INFORMATION
  Report Type: 
  Country: None (occurrence: None)
  Receive Date: 20100525
  Receipt Date: 20100514
  Transmission Date: 20101027
  Serious: Yes (Hospitalization)
  Sender: FDA-Public Use
  Company Number: US-ROCHE-704401

PATIENT
  Sex: Female

DRUGS (1)
  1. VALGANCICLOVIR HCL [Suspect]
     Indication: DRUG USE FOR UNKNOWN INDICATION
     Route: 065
     Dates: start: 20091101

REACTIONS (6)
  - CYTOMEGALOVIRUS INFECTION [None]
  - DIARRHOEA [None]
  - HALLUCINATION [None]
  - PNEUMONIA [None]
  - PYREXIA [None]
  - SKIN ULCER [None]
